FAERS Safety Report 24252322 (Version 1)
Quarter: 2024Q3

REPORT INFORMATION
  Report Type: Spontaneous
  Country: KP (occurrence: KP)
  Receive Date: 20240827
  Receipt Date: 20240827
  Transmission Date: 20241017
  Serious: Yes (Other)
  Sender: Halocarbon Life Sciences
  Company Number: KP-HALOCARBON LIFE SCIENCES, LLC-20240800006

PATIENT

DRUGS (7)
  1. SEVOFLURANE [Suspect]
     Active Substance: SEVOFLURANE
     Indication: General anaesthesia
     Dosage: 3 VOL%
     Route: 065
  2. PROPOFOL [Concomitant]
     Active Substance: PROPOFOL
     Indication: General anaesthesia
     Dosage: 120 MILLIGRAM
  3. FENTANYL [Concomitant]
     Active Substance: FENTANYL\FENTANYL CITRATE
     Indication: Pain
     Dosage: 50 MICROGRAM
  4. FENTANYL [Concomitant]
     Active Substance: FENTANYL\FENTANYL CITRATE
     Indication: General anaesthesia
     Dosage: 50 MICROGRAM
  5. ROCURONIUM [Concomitant]
     Active Substance: ROCURONIUM BROMIDE
     Indication: General anaesthesia
     Dosage: 50 MILLIGRAM
  6. EPHEDRINE [Concomitant]
     Active Substance: EPHEDRINE
     Dosage: 5 MILLIGRAM
     Route: 042
  7. HUMAN PLASMA [Concomitant]
     Active Substance: HUMAN PLASMA
     Dosage: 600 MILLILITER
     Route: 042

REACTIONS (1)
  - Drug-induced liver injury [Recovered/Resolved]
